FAERS Safety Report 9963210 (Version 1)
Quarter: 2014Q1

REPORT INFORMATION
  Report Type: Report from Study
  Country: US (occurrence: US)
  Receive Date: 20140305
  Receipt Date: 20140305
  Transmission Date: 20141002
  Serious: No
  Sender: FDA-Public Use
  Company Number: US-ABBVIE-13P-163-1119354-00

PATIENT
  Age: 28 Year
  Sex: Female
  Weight: 62.2 kg

DRUGS (3)
  1. HUMIRA [Suspect]
     Indication: PSORIASIS
     Route: 058
     Dates: start: 20130620
  2. PROTOPIC [Concomitant]
     Indication: PSORIASIS
  3. LYSINE [Concomitant]
     Indication: SUPPLEMENTATION THERAPY

REACTIONS (3)
  - Injection site erythema [Not Recovered/Not Resolved]
  - Injection site swelling [Not Recovered/Not Resolved]
  - Injection site pruritus [Not Recovered/Not Resolved]
